FAERS Safety Report 7386765 (Version 3)
Quarter: 2012Q4

REPORT INFORMATION
  Report Type: 
  Country: JP (occurrence: JP)
  Receive Date: 20100513
  Receipt Date: 20120831
  Transmission Date: 20130627
  Serious: Yes (Hospitalization)
  Sender: FDA-Public Use
  Company Number: PHHO2009JP15381

PATIENT
  Age: 78 Year
  Sex: Male
  Weight: 67 kg

DRUGS (24)
  1. BLINDED ALISKIREN [Suspect]
     Indication: CARDIAC FAILURE
     Dosage: Code not broken
     Route: 048
     Dates: start: 20100304
  2. BLINDED ENALAPRIL [Suspect]
     Indication: CARDIAC FAILURE
     Dosage: Code not broken
     Route: 048
     Dates: start: 20100304
  3. BLINDED NO TREATMENT RECEIVED [Suspect]
     Indication: CARDIAC FAILURE
     Dosage: Code not broken
     Route: 048
     Dates: start: 20100304
  4. ALISKIREN [Suspect]
     Indication: CARDIAC FAILURE
     Dosage: UNK
     Route: 048
     Dates: start: 20100304
  5. COMPARATOR ENALAPRIL [Suspect]
     Indication: CARDIAC FAILURE
     Dosage: UNK
     Route: 048
     Dates: start: 20100122
  6. RENIVACE [Concomitant]
  7. MAINTATE [Concomitant]
  8. DIGOXIN [Concomitant]
  9. KALGUT [Concomitant]
  10. ALOSITOL [Concomitant]
  11. NITROPEN [Concomitant]
  12. NITROGLYCERIN [Concomitant]
  13. LENDORMIN [Concomitant]
     Indication: INSOMNIA
     Dosage: UNK
     Route: 048
     Dates: start: 20091020
  14. BUFFERIN [Concomitant]
  15. PLAVIX [Concomitant]
  16. TAKEPRON [Concomitant]
  17. ALDACTONE [Concomitant]
     Indication: CARDIAC FAILURE CHRONIC
     Dosage: 25 mg, UNK
     Route: 048
     Dates: start: 20120503
  18. MAGMITT [Concomitant]
     Indication: CONSTIPATION
     Dosage: 750 mg, UNK
     Route: 048
     Dates: start: 20100401
  19. FERROMIA [Concomitant]
     Indication: IRON DEFICIENCY ANAEMIA
     Dosage: 100 mg, UNK
     Route: 048
     Dates: start: 20120601
  20. LASIX [Concomitant]
     Indication: CARDIAC FAILURE CHRONIC
     Dosage: 20 mg, UNK
     Route: 048
     Dates: start: 20090319
  21. LASIX [Concomitant]
     Dosage: 80 mg, UNK
     Route: 048
  22. LASIX [Concomitant]
     Dosage: 40 mg, UNK
     Route: 048
     Dates: start: 20120503
  23. MEVALOTIN [Concomitant]
  24. HARNAL [Concomitant]

REACTIONS (7)
  - Cardiac failure [Recovered/Resolved]
  - Pleural effusion [Recovered/Resolved]
  - Brain natriuretic peptide increased [Recovered/Resolved]
  - Oedema peripheral [Recovered/Resolved]
  - Restlessness [Recovered/Resolved]
  - Insomnia [Recovered/Resolved]
  - Dyspnoea [Recovered/Resolved]
